FAERS Safety Report 7213771-6 (Version None)
Quarter: 2011Q1

REPORT INFORMATION
  Report Type: 
  Country: None (occurrence: None)
  Receive Date: 20110106
  Receipt Date: 20101217
  Transmission Date: 20110831
  Serious: No
  Sender: FDA-Public Use
  Company Number: US-B.I. PHARMACEUTICALS,INC./RIDGEFIELD-2010-BP-14888BP

PATIENT
  Sex: Male

DRUGS (2)
  1. ZANTAC 150 [Suspect]
     Indication: GASTROOESOPHAGEAL REFLUX DISEASE
     Dosage: 300 MG
     Route: 048
     Dates: start: 20101210
  2. PREDNISONE [Suspect]
     Indication: ARTHRITIS
     Dosage: 30 MG
     Route: 048
     Dates: start: 20101210

REACTIONS (2)
  - PAINFUL DEFAECATION [None]
  - FREQUENT BOWEL MOVEMENTS [None]
